FAERS Safety Report 11105551 (Version 2)
Quarter: 2015Q2

REPORT INFORMATION
  Report Type: Spontaneous
  Country: US (occurrence: US)
  Receive Date: 20150512
  Receipt Date: 20150529
  Transmission Date: 20150821
  Serious: No
  Sender: FDA-Public Use
  Company Number: US-009507513-1505USA003925

PATIENT
  Sex: Male

DRUGS (2)
  1. DULERA [Suspect]
     Active Substance: FORMOTEROL FUMARATE DIHYDRATE\MOMETASONE FUROATE
     Dosage: TWO PUFFS TWICE DAILY
     Route: 055
     Dates: start: 201205
  2. DULERA [Suspect]
     Active Substance: FORMOTEROL FUMARATE DIHYDRATE\MOMETASONE FUROATE
     Dosage: TWO PUFFS TWICE DAILY
     Route: 055
     Dates: start: 201503

REACTIONS (3)
  - Drug dose omission [Unknown]
  - Wrong technique in drug usage process [Unknown]
  - No adverse event [Unknown]

NARRATIVE: CASE EVENT DATE: 2015
